FAERS Safety Report 18497216 (Version 1)
Quarter: 2020Q4

REPORT INFORMATION
  Report Type: Spontaneous
  Country: US (occurrence: US)
  Receive Date: 20201112
  Receipt Date: 20201112
  Transmission Date: 20210114
  Serious: Yes (Hospitalization, Other)
  Sender: FDA-Public Use
  Company Number: US-PURDUE-USA-2020-0172722

PATIENT

DRUGS (4)
  1. HYDROCODONE BITARTRATE (SIMILAR TO NDA 206627) [Suspect]
     Active Substance: HYDROCODONE BITARTRATE
     Indication: OROPHARYNGEAL DISCOMFORT
     Dosage: UNK
     Route: 048
  2. OXYCODONE HYDROCHLORIDE (SIMILAR TO NDA 22-272) [Suspect]
     Active Substance: OXYCODONE HYDROCHLORIDE
     Indication: OROPHARYNGEAL DISCOMFORT
     Dosage: UNK
     Route: 048
  3. HYDROMORPHONE HCL (SIMILAR TO 19-892) [Suspect]
     Active Substance: HYDROMORPHONE HYDROCHLORIDE
     Indication: OROPHARYNGEAL DISCOMFORT
     Dosage: UNK
     Route: 048
  4. SUBOXONE [Suspect]
     Active Substance: BUPRENORPHINE HYDROCHLORIDE\NALOXONE HYDROCHLORIDE
     Indication: OROPHARYNGEAL DISCOMFORT
     Dosage: UNK
     Route: 065

REACTIONS (11)
  - Drug abuse [Unknown]
  - Hospitalisation [Unknown]
  - Pain [Unknown]
  - Overdose [Unknown]
  - Abscess [Unknown]
  - Derealisation [Unknown]
  - Emotional distress [Unknown]
  - Drug dependence [Unknown]
  - Limb injury [Unknown]
  - Drug withdrawal syndrome [Unknown]
  - Cellulitis [Unknown]

NARRATIVE: CASE EVENT DATE: 2013
